FAERS Safety Report 19651096 (Version 1)
Quarter: 2021Q3

REPORT INFORMATION
  Report Type: Spontaneous
  Country: AR (occurrence: AR)
  Receive Date: 20210802
  Receipt Date: 20210802
  Transmission Date: 20211014
  Serious: Yes (Other)
  Sender: FDA-Public Use
  Company Number: AR-AMGEN-ARGSP2020172894

PATIENT
  Age: 68 Year
  Sex: Female

DRUGS (3)
  1. ENBREL [Suspect]
     Active Substance: ETANERCEPT
     Indication: RHEUMATOID ARTHRITIS
     Dosage: 50 MG (1 DOSE EVERY 10 DAYS)
     Route: 065
     Dates: start: 20090819
  2. ENBREL [Suspect]
     Active Substance: ETANERCEPT
     Dosage: 50 MG( 1 DOSE EVERY 10DAYS)
     Route: 065
  3. ENBREL [Suspect]
     Active Substance: ETANERCEPT
     Dosage: 50 MG( 1 DOSE EVERY 10DAYS)
     Route: 065

REACTIONS (6)
  - Blindness unilateral [Not Recovered/Not Resolved]
  - Off label use [Not Recovered/Not Resolved]
  - Sensitivity to weather change [Not Recovered/Not Resolved]
  - Arthritis [Not Recovered/Not Resolved]
  - Visual impairment [Not Recovered/Not Resolved]
  - Malaise [Unknown]

NARRATIVE: CASE EVENT DATE: 20090819
